FAERS Safety Report 7970927-2 (Version None)
Quarter: 2011Q4

REPORT INFORMATION
  Report Type: 
  Country: None (occurrence: None)
  Receive Date: 20111212
  Receipt Date: 20111206
  Transmission Date: 20120403
  Serious: Yes (Hospitalization)
  Sender: FDA-Public Use
  Company Number: IN-ROXANE LABORATORIES, INC.-2011-RO-01750RO

PATIENT
  Age: 61 Year
  Sex: Male

DRUGS (16)
  1. AMILORIDE HYDROCHLORIDE [Suspect]
     Dosage: 40 MG
  2. FUROSEMIDE [Suspect]
     Indication: RENAL FAILURE ACUTE
     Dosage: 80 MG
  3. ARTEETHER [Suspect]
     Indication: MALARIA PROPHYLAXIS
     Dosage: 150 MG
     Route: 042
  4. TORSEMIDE [Suspect]
     Indication: RENAL FAILURE ACUTE
     Dosage: 40 MG
  5. CEFOTAXIME [Concomitant]
     Indication: SEPSIS
     Dosage: 2 G
  6. CASPOFUNGIN ACETATE [Concomitant]
     Indication: SEPSIS
     Dosage: 50 MG
  7. TAZOBACTAM [Concomitant]
     Indication: SEPSIS
  8. MEROPENEM [Concomitant]
     Indication: SEPSIS
  9. ATENOLOL [Suspect]
     Dosage: 75 MG
  10. METOLAZONE [Suspect]
     Indication: RENAL FAILURE ACUTE
     Dosage: 5 MG
  11. CEFTRIAXONE [Concomitant]
     Indication: SEPSIS
  12. TIGECYCLINE [Concomitant]
     Indication: SEPSIS
     Dosage: 100 MG
  13. AMLODIPINE BESYLATE [Suspect]
     Dosage: 7.5 MG
  14. ASPIRIN [Suspect]
     Dosage: 50 MG
  15. TEICOPLANIN [Concomitant]
     Indication: SEPSIS
  16. DORIPENEM MONOHYDRATE [Concomitant]
     Indication: SEPSIS
     Dosage: 500 MG

REACTIONS (4)
  - BLOOD CREATININE INCREASED [None]
  - AZOTAEMIA [None]
  - SEPSIS [None]
  - RENAL FAILURE ACUTE [None]
